FAERS Safety Report 9842130 (Version 1)
Quarter: 2014Q1

REPORT INFORMATION
  Report Type: Spontaneous
  Country: US (occurrence: None)
  Receive Date: 20140123
  Receipt Date: 20140123
  Transmission Date: 20141002
  Serious: No
  Sender: FDA-Public Use
  Company Number: None

PATIENT
  Age: 26 Year
  Sex: Female

DRUGS (1)
  1. ZINC [Suspect]
     Indication: PAIN
     Dates: start: 20131111, end: 20131111

REACTIONS (2)
  - Blood pressure decreased [None]
  - Exposure during pregnancy [None]
